FAERS Safety Report 18970907 (Version 1)
Quarter: 2021Q1

REPORT INFORMATION
  Report Type: Report from Study
  Country: None (occurrence: CO)
  Receive Date: 20210305
  Receipt Date: 20210305
  Transmission Date: 20210420
  Serious: Yes (Other)
  Sender: FDA-Public Use
  Company Number: CO-ABBVIE-21K-036-3800175-00

PATIENT
  Age: 86 Year
  Sex: Female
  Weight: 50 kg

DRUGS (1)
  1. VENCLEXTA [Suspect]
     Active Substance: VENETOCLAX
     Indication: CHRONIC LYMPHOCYTIC LEUKAEMIA
     Route: 048
     Dates: start: 20201102

REACTIONS (3)
  - Humerus fracture [Recovering/Resolving]
  - Fall [Recovering/Resolving]
  - Mobility decreased [Recovering/Resolving]

NARRATIVE: CASE EVENT DATE: 202102
